FAERS Safety Report 24799934 (Version 1)
Quarter: 2024Q4

REPORT INFORMATION
  Report Type: Spontaneous
  Country: GB (occurrence: None)
  Receive Date: 20241231
  Receipt Date: 20241231
  Transmission Date: 20250114
  Serious: Yes (Disabling)
  Sender: Public
  Company Number: None

PATIENT
  Age: 23 Year
  Sex: Male
  Weight: 98 kg

DRUGS (2)
  1. CELEXA [Suspect]
     Active Substance: CITALOPRAM HYDROBROMIDE
     Indication: Depression
     Dates: start: 20190601, end: 20221101
  2. CELEXA [Suspect]
     Active Substance: CITALOPRAM HYDROBROMIDE
     Indication: Obsessive-compulsive disorder

REACTIONS (25)
  - Sexual dysfunction [None]
  - Withdrawal syndrome [None]
  - Visual impairment [None]
  - Nervous system disorder [None]
  - Nonspecific reaction [None]
  - Anorgasmia [None]
  - Premature ejaculation [None]
  - Libido decreased [None]
  - Fatigue [None]
  - Anhedonia [None]
  - Akathisia [None]
  - Brain fog [None]
  - Amnesia [None]
  - Apathy [None]
  - Gastrointestinal disorder [None]
  - Abdominal distension [None]
  - Abdominal pain upper [None]
  - Cystitis interstitial [None]
  - Photophobia [None]
  - Vision blurred [None]
  - Eye pain [None]
  - Ocular discomfort [None]
  - Lacrimation increased [None]
  - Dry eye [None]
  - Food allergy [None]

NARRATIVE: CASE EVENT DATE: 20221101
